FAERS Safety Report 8430451-X (Version None)
Quarter: 2012Q2

REPORT INFORMATION
  Report Type: 
  Country: None (occurrence: None)
  Receive Date: 20120323
  Receipt Date: 20110603
  Transmission Date: 20120825
  Serious: Yes (Hospitalization, Other)
  Sender: FDA-Public Use
  Company Number: 163-21880-11060812

PATIENT
  Age: 83 Year
  Sex: Male
  Weight: 77.1 kg

DRUGS (2)
  1. REVLIMID [Suspect]
     Indication: MULTIPLE MYELOMA
     Dosage: 5 MG, DAILY X 4 DAYS, PO; 10 MG, 2 IN 1 D, PO
     Route: 048
     Dates: start: 20100218, end: 20100628
  2. REVLIMID [Suspect]
     Indication: MULTIPLE MYELOMA
     Dosage: 5 MG, DAILY X 4 DAYS, PO; 10 MG, 2 IN 1 D, PO
     Route: 048
     Dates: start: 20110418

REACTIONS (1)
  - FULL BLOOD COUNT DECREASED [None]
